FAERS Safety Report 6355614-9 (Version None)
Quarter: 2009Q3

REPORT INFORMATION
  Report Type: 
  Country: None (occurrence: None)
  Receive Date: 20090914
  Receipt Date: 20090831
  Transmission Date: 20100115
  Serious: Yes (Life-Threatening, Other)
  Sender: FDA-Public Use
  Company Number: RO-PFIZER INC-2009268204

PATIENT
  Age: 54 Year

DRUGS (4)
  1. SORTIS [Suspect]
     Indication: MIXED HYPERLIPIDAEMIA
     Dosage: 10 MG, 1X/DAY
     Route: 048
     Dates: start: 20090305, end: 20090318
  2. METOPROLOL TARTRATE [Concomitant]
     Indication: ESSENTIAL HYPERTENSION
     Dosage: 1 DF, 1X/DAY
     Route: 048
     Dates: start: 20061204
  3. SERMION [Concomitant]
     Indication: LOSS OF CONSCIOUSNESS
     Dosage: 1 DF, 1X/DAY
     Route: 048
     Dates: start: 20060609
  4. ACETYLSALICYLIC ACID [Concomitant]
     Indication: ISCHAEMIC CARDIOMYOPATHY
     Dosage: 1 DF, 1X/DAY
     Route: 048
     Dates: start: 20061204

REACTIONS (7)
  - ANXIETY [None]
  - DYSPNOEA [None]
  - EYELID OEDEMA [None]
  - GENERALISED ERYTHEMA [None]
  - LARYNGEAL OEDEMA [None]
  - LIP OEDEMA [None]
  - OEDEMA PERIPHERAL [None]
